FAERS Safety Report 4267970-6 (Version None)
Quarter: 2004Q1

REPORT INFORMATION
  Report Type: 
  Country: None (occurrence: None)
  Receive Date: 20040108
  Receipt Date: 20030610
  Transmission Date: 20041129
  Serious: Yes (Other)
  Sender: FDA-Public Use
  Company Number: WAES 0306USA01250

PATIENT
  Age: 57 Year
  Sex: Male
  Weight: 147.8726 kg

DRUGS (10)
  1. AGGRASTAT [Suspect]
     Indication: CORONARY ANGIOPLASTY
     Dosage: 0.15
     Dates: start: 20030407, end: 20030408
  2. ASPIRIN [Concomitant]
  3. ATENOLOL [Concomitant]
  4. ATORVASTATIN CALCIUM [Concomitant]
  5. BENAZEPRIKL HYDROCHLORIDE [Concomitant]
  6. CLOPIDOGREL BISULFATE [Concomitant]
  7. FUROSEMIDE [Concomitant]
  8. HEPARIN [Concomitant]
  9. NITROGLYCERIN [Concomitant]
  10. PROPYLTHIOURACIL [Concomitant]

REACTIONS (2)
  - EPISTAXIS [None]
  - HAEMATEMESIS [None]
